FAERS Safety Report 4722788-2 (Version None)
Quarter: 2005Q3

REPORT INFORMATION
  Report Type: 
  Country: None (occurrence: None)
  Receive Date: 20050722
  Receipt Date: 20050719
  Transmission Date: 20060218
  Serious: Yes (Other)
  Sender: FDA-Public Use
  Company Number: US-MERCK-0507USA02761

PATIENT
  Age: 53 Year
  Sex: Female

DRUGS (2)
  1. VIOXX [Suspect]
     Indication: BURSITIS
     Route: 048
     Dates: end: 20030711
  2. VIOXX [Suspect]
     Route: 048
     Dates: end: 20030711

REACTIONS (1)
  - CEREBROVASCULAR ACCIDENT [None]
